FAERS Safety Report 12574959 (Version 8)
Quarter: 2017Q3

REPORT INFORMATION
  Report Type: Report from Study
  Country: BR (occurrence: BR)
  Receive Date: 20160720
  Receipt Date: 20170920
  Transmission Date: 20171127
  Serious: Yes (Other)
  Sender: FDA-Public Use
  Company Number: BR-JNJFOC-20160712326

PATIENT
  Sex: Female

DRUGS (3)
  1. IMBRUVICA [Suspect]
     Active Substance: IBRUTINIB
     Indication: LYMPHOCYTIC LYMPHOMA
     Route: 048
     Dates: start: 20151215
  2. IMBRUVICA [Suspect]
     Active Substance: IBRUTINIB
     Indication: CHRONIC LYMPHOCYTIC LEUKAEMIA
     Route: 048
     Dates: start: 20151215
  3. ERYTHROPOIETIN [Concomitant]
     Active Substance: ERYTHROPOIETIN
     Route: 065

REACTIONS (17)
  - Fatigue [Not Recovered/Not Resolved]
  - Temperature intolerance [Unknown]
  - Rash erythematous [Not Recovered/Not Resolved]
  - Nasal dryness [Unknown]
  - Vomiting [Unknown]
  - Eating disorder symptom [Unknown]
  - Depressed mood [Recovered/Resolved]
  - Hypersensitivity [Recovering/Resolving]
  - Urticaria [Recovering/Resolving]
  - Insomnia [Unknown]
  - Skin mass [Recovered/Resolved]
  - Anaemia [Not Recovered/Not Resolved]
  - Burning sensation [Unknown]
  - Influenza [Recovering/Resolving]
  - Haemorrhage [Unknown]
  - Malaise [Unknown]
  - Mouth ulceration [Unknown]

NARRATIVE: CASE EVENT DATE: 2016
